FAERS Safety Report 19590847 (Version 1)
Quarter: 2021Q3

REPORT INFORMATION
  Report Type: Spontaneous
  Country: CN (occurrence: CN)
  Receive Date: 20210721
  Receipt Date: 20210721
  Transmission Date: 20211014
  Serious: Yes (Other)
  Sender: FDA-Public Use
  Company Number: CN-PFIZER INC-2021855819

PATIENT
  Age: 66 Year
  Sex: Male
  Weight: 52.5 kg

DRUGS (6)
  1. CAMPTO [Suspect]
     Active Substance: IRINOTECAN
     Indication: RECTAL CANCER
     Dosage: 0.2 G, 1X/DAY
     Route: 041
     Dates: start: 20210607, end: 20210607
  2. SODIUM CHLORIDE. [Concomitant]
     Active Substance: SODIUM CHLORIDE
     Indication: RECTAL CANCER
     Dosage: 70 ML, 1X/DAY
     Dates: start: 20210606, end: 20210608
  3. SODIUM CHLORIDE. [Concomitant]
     Active Substance: SODIUM CHLORIDE
     Indication: RECTAL CANCER
     Dosage: 250 ML, 1X/DAY
     Route: 041
     Dates: start: 20210607, end: 20210607
  4. BEVACIZUMAB. [Suspect]
     Active Substance: BEVACIZUMAB
     Indication: RECTAL CANCER
     Dosage: 300 MG, 1X/DAY
     Route: 041
     Dates: start: 20210606, end: 20210606
  5. FLUOROURACIL. [Suspect]
     Active Substance: FLUOROURACIL
     Indication: RECTAL CANCER
     Dosage: 4 G, 1X/DAY
     Dates: start: 20210606, end: 20210608
  6. SODIUM CHLORIDE. [Concomitant]
     Active Substance: SODIUM CHLORIDE
     Dosage: 100 ML, 1X/DAY
     Route: 041
     Dates: start: 20210606, end: 20210606

REACTIONS (3)
  - Full blood count decreased [Recovering/Resolving]
  - Neutrophil count decreased [Recovering/Resolving]
  - White blood cell count decreased [Recovering/Resolving]

NARRATIVE: CASE EVENT DATE: 20210611
